FAERS Safety Report 19773233 (Version 1)
Quarter: 2021Q3

REPORT INFORMATION
  Report Type: Spontaneous
  Country: AS (occurrence: AS)
  Receive Date: 20210828
  Receipt Date: 20210828
  Transmission Date: 20211014
  Serious: No
  Sender: FDA-Public Use
  Company Number: None

PATIENT
  Age: 67 Year
  Sex: Female

DRUGS (1)
  1. POMALYST [Suspect]
     Active Substance: POMALIDOMIDE
     Indication: PLASMA CELL MYELOMA
     Route: 048
     Dates: start: 20190613, end: 20210823

REACTIONS (4)
  - Fatigue [None]
  - Neuropathy peripheral [None]
  - Gastrooesophageal reflux disease [None]
  - Impaired gastric emptying [None]

NARRATIVE: CASE EVENT DATE: 20210823
